FAERS Safety Report 5590131-5 (Version None)
Quarter: 2008Q1

REPORT INFORMATION
  Report Type: 
  Country: None (occurrence: None)
  Receive Date: 20080114
  Receipt Date: 20070611
  Transmission Date: 20080703
  Serious: No
  Sender: FDA-Public Use
  Company Number: US-ABBOTT-07P-163-0372313-00

PATIENT
  Sex: Male
  Weight: 11.35 kg

DRUGS (2)
  1. OMNICEF [Suspect]
     Indication: EAR INFECTION
     Dosage: 250 MG/5 ML 0.75 TSP DAILY
     Route: 048
     Dates: start: 20070502, end: 20070506
  2. PARACETAMOL [Concomitant]
     Indication: DRUG USE FOR UNKNOWN INDICATION

REACTIONS (1)
  - DRUG INEFFECTIVE [None]
